FAERS Safety Report 12674409 (Version 1)
Quarter: 2016Q3

REPORT INFORMATION
  Report Type: Spontaneous
  Country: US (occurrence: US)
  Receive Date: 20160822
  Receipt Date: 20160822
  Transmission Date: 20161109
  Serious: No
  Sender: FDA-Public Use
  Company Number: US-BEH-2015056079

PATIENT
  Weight: 60.33 kg

DRUGS (27)
  1. ZEMAIRA [Suspect]
     Active Substance: .ALPHA.1-PROTEINASE INHIBITOR HUMAN
     Indication: ALPHA-1 ANTI-TRYPSIN DEFICIENCY
     Dosage: 970 MG/VL
     Route: 042
  2. ALLEGRA [Concomitant]
     Active Substance: FEXOFENADINE HYDROCHLORIDE
  3. SPIRIVA [Concomitant]
     Active Substance: TIOTROPIUM BROMIDE MONOHYDRATE
  4. FLAXSEED [Concomitant]
     Active Substance: FLAX SEED
  5. VITAMIN C [Concomitant]
     Active Substance: ASCORBIC ACID
  6. DAILY MULTIVITAMIN [Concomitant]
     Active Substance: VITAMINS
  7. TRIAMCINOLONE ACETONIDE. [Concomitant]
     Active Substance: TRIAMCINOLONE ACETONIDE
  8. MEDROL [Concomitant]
     Active Substance: METHYLPREDNISOLONE
  9. LORATADINE. [Concomitant]
     Active Substance: LORATADINE
  10. ZEMAIRA [Suspect]
     Active Substance: .ALPHA.1-PROTEINASE INHIBITOR HUMAN
     Indication: BRONCHITIS CHRONIC
  11. EPIPEN [Concomitant]
     Active Substance: EPINEPHRINE
  12. MOTRIN [Concomitant]
     Active Substance: IBUPROFEN
  13. MILK THISTLE [Concomitant]
     Active Substance: MILK THISTLE
  14. CYANOCOBALAMIN. [Concomitant]
     Active Substance: CYANOCOBALAMIN
  15. DIPHENHYDRAMINE. [Concomitant]
     Active Substance: DIPHENHYDRAMINE
  16. PREDNISONE. [Concomitant]
     Active Substance: PREDNISONE
  17. FLUTICASONE PROPIONATE. [Concomitant]
     Active Substance: FLUTICASONE PROPIONATE
  18. OXYGEN. [Concomitant]
     Active Substance: OXYGEN
  19. COQ 10 [Concomitant]
     Active Substance: UBIDECARENONE
  20. LIDOCAINE. [Concomitant]
     Active Substance: LIDOCAINE
  21. ALBUTEROL. [Concomitant]
     Active Substance: ALBUTEROL
  22. VITAMIN B1 [Concomitant]
     Active Substance: THIAMINE HYDROCHLORIDE
  23. XOPENEX [Concomitant]
     Active Substance: LEVALBUTEROL HYDROCHLORIDE
  24. SODIUM CHLORIDE. [Concomitant]
     Active Substance: SODIUM CHLORIDE
  25. THEOPHYLLINE [Concomitant]
     Active Substance: THEOPHYLLINE ANHYDROUS
  26. ZITHROMAX [Concomitant]
     Active Substance: AZITHROMYCIN DIHYDRATE
  27. ADVAIR HFA [Concomitant]
     Active Substance: FLUTICASONE PROPIONATE\SALMETEROL XINAFOATE

REACTIONS (1)
  - Nasopharyngitis [Unknown]
